FAERS Safety Report 5284838-7 (Version None)
Quarter: 2007Q1

REPORT INFORMATION
  Report Type: 
  Country: None (occurrence: None)
  Receive Date: 20061229
  Receipt Date: 20060523
  Transmission Date: 20070707
  Serious: Yes (Other)
  Sender: FDA-Public Use
  Company Number: PHEH2006US06748

PATIENT

DRUGS (1)
  1. CLOZARIL [Suspect]

REACTIONS (1)
  - DIABETES MELLITUS [None]
